FAERS Safety Report 5828224-7 (Version None)
Quarter: 2008Q3

REPORT INFORMATION
  Report Type: 
  Country: None (occurrence: None)
  Receive Date: 20080729
  Receipt Date: 20080710
  Transmission Date: 20090109
  Serious: No
  Sender: FDA-Public Use
  Company Number: 8029463

PATIENT
  Age: 71 Year
  Weight: 56 kg

DRUGS (3)
  1. XYZAL [Suspect]
     Indication: HYPERSENSITIVITY
     Dosage: 1 DF /D; PO
     Route: 048
     Dates: end: 20080301
  2. XYZAL [Suspect]
     Indication: HYPERSENSITIVITY
     Dosage: 1 DF /D; PO
     Route: 048
     Dates: start: 20080301, end: 20080101
  3. ATACAND [Concomitant]

REACTIONS (1)
  - ELECTROCARDIOGRAM QT PROLONGED [None]
